FAERS Safety Report 16191884 (Version 1)
Quarter: 2019Q2

REPORT INFORMATION
  Report Type: Spontaneous
  Country: US (occurrence: US)
  Receive Date: 20190412
  Receipt Date: 20190412
  Transmission Date: 20190711
  Serious: Yes (Other)
  Sender: FDA-Public Use
  Company Number: US-009507513-1904USA004217

PATIENT
  Age: 25 Year
  Sex: Female
  Weight: 73.47 kg

DRUGS (4)
  1. NEXPLANON [Suspect]
     Active Substance: ETONOGESTREL
     Indication: CONTRACEPTION
     Dosage: 1 DOSAGE FORM, IN THE LEFT ARM
     Route: 023
     Dates: start: 20190404, end: 20190405
  2. IBUPROFEN. [Concomitant]
     Active Substance: IBUPROFEN
  3. IRON (UNSPECIFIED) (+) MINERALS (UNSPECIFIED) (+) VITAMINS (UNSPECIFIE [Concomitant]
     Active Substance: IRON\MINERALS\VITAMINS
  4. OXYCODONE [Concomitant]
     Active Substance: OXYCODONE

REACTIONS (4)
  - Inappropriate schedule of product administration [Unknown]
  - Complication associated with device [Unknown]
  - Device expulsion [Unknown]
  - Uterine haemorrhage [Recovering/Resolving]

NARRATIVE: CASE EVENT DATE: 20190404
